FAERS Safety Report 7865131-2 (Version None)
Quarter: 2011Q4

REPORT INFORMATION
  Report Type: 
  Country: None (occurrence: None)
  Receive Date: 20111028
  Receipt Date: 20101019
  Transmission Date: 20120403
  Serious: No
  Sender: FDA-Public Use
  Company Number: US-GLAXOSMITHKLINE-A0887610A

PATIENT
  Sex: Female

DRUGS (7)
  1. BENAZEPRIL HYDROCHLORIDE [Concomitant]
  2. LESCOL [Concomitant]
  3. NEXIUM [Concomitant]
  4. ADVAIR DISKUS 100/50 [Suspect]
     Indication: CHRONIC OBSTRUCTIVE PULMONARY DISEASE
     Dosage: 1PUFF TWICE PER DAY
     Route: 055
  5. VITAMIN TAB [Concomitant]
  6. COMBIVENT [Concomitant]
  7. ASPIRIN [Concomitant]

REACTIONS (2)
  - BRONCHITIS [None]
  - HYPERTENSION [None]
